FAERS Safety Report 6574198-3 (Version None)
Quarter: 2010Q1

REPORT INFORMATION
  Report Type: 
  Country: None (occurrence: None)
  Receive Date: 20100208
  Receipt Date: 20100129
  Transmission Date: 20100710
  Serious: Yes (Hospitalization, Other)
  Sender: FDA-Public Use
  Company Number: US-ABBOTT-10P-163-0623140-00

PATIENT
  Sex: Female

DRUGS (4)
  1. HUMIRA [Suspect]
     Indication: CROHN'S DISEASE
     Dates: start: 20091104
  2. TETANUS TOXOID [Suspect]
     Indication: DRUG USE FOR UNKNOWN INDICATION
  3. ANTIDEPRESSANTS [Concomitant]
     Indication: DRUG USE FOR UNKNOWN INDICATION
  4. UNKNOWN ANTIANXIETY [Concomitant]
     Indication: DRUG USE FOR UNKNOWN INDICATION

REACTIONS (6)
  - CONVULSION [None]
  - HOSPITALISATION [None]
  - ILL-DEFINED DISORDER [None]
  - MOBILITY DECREASED [None]
  - OPEN WOUND [None]
  - PAIN [None]
